FAERS Safety Report 6519692-6 (Version None)
Quarter: 2009Q4

REPORT INFORMATION
  Report Type: 
  Country: None (occurrence: None)
  Receive Date: 20091228
  Receipt Date: 20091216
  Transmission Date: 20100525
  Serious: Yes (Death)
  Sender: FDA-Public Use
  Company Number: JP-PFIZER INC-2009311998

PATIENT
  Age: 10 Month
  Sex: Female
  Weight: 4.5 kg

DRUGS (13)
  1. SILDENAFIL CITRATE [Suspect]
     Indication: PULMONARY ARTERIAL HYPERTENSION
     Dosage: FREQUENCY: 3X/DAY,
     Route: 048
     Dates: start: 20090601
  2. FLOLAN [Concomitant]
     Indication: PULMONARY ARTERIAL HYPERTENSION
     Route: 042
     Dates: start: 20090225
  3. TRACLEER [Concomitant]
     Indication: PULMONARY ARTERIAL HYPERTENSION
     Route: 048
     Dates: start: 20090430
  4. LYPLE [Concomitant]
     Indication: PULMONARY ARTERIAL HYPERTENSION
     Route: 042
  5. MUCODYNE [Concomitant]
     Route: 048
  6. ERYTHROCIN LACTOBIONATE [Concomitant]
     Route: 048
     Dates: start: 20090802
  7. MUCOSOLVAN [Concomitant]
     Route: 048
  8. MIDAZOLAM [Concomitant]
     Route: 042
  9. VECURONIUM BROMIDE [Concomitant]
     Route: 042
  10. INOVAN [Concomitant]
     Route: 042
  11. CORETEC [Concomitant]
     Route: 042
  12. LASIX [Concomitant]
     Route: 042
  13. NITRIC OXIDE [Concomitant]
     Indication: PULMONARY ARTERIAL HYPERTENSION

REACTIONS (1)
  - DEATH [None]
